FAERS Safety Report 11363988 (Version 1)
Quarter: 2015Q3

REPORT INFORMATION
  Report Type: Spontaneous
  Country: US (occurrence: None)
  Receive Date: 20150810
  Receipt Date: 20150810
  Transmission Date: 20151125
  Serious: Yes (Disabling)
  Sender: FDA-Public Use
  Company Number: None

PATIENT
  Age: 59 Year
  Sex: Male
  Weight: 99.79 kg

DRUGS (8)
  1. VITAMIN C PACKET [Concomitant]
  2. PANTOPRAZOLE [Concomitant]
     Active Substance: PANTOPRAZOLE SODIUM
  3. ATENLOL [Concomitant]
  4. ASMANEX TWIST INHALER [Concomitant]
  5. SELEGILINE [Suspect]
     Active Substance: SELEGILINE
     Indication: DRY MOUTH
     Dosage: 1 PILL
     Route: 048
  6. GLUCOSAMINE [Concomitant]
     Active Substance: GLUCOSAMINE
  7. SALAGEN [Suspect]
     Active Substance: PILOCARPINE HYDROCHLORIDE
  8. CYCLOBEOZAPINE [Concomitant]

REACTIONS (3)
  - Amnesia [None]
  - Wrong drug administered [None]
  - Tremor [None]

NARRATIVE: CASE EVENT DATE: 20060403
